FAERS Safety Report 19646401 (Version 1)
Quarter: 2021Q3

REPORT INFORMATION
  Report Type: Spontaneous
  Country: AT (occurrence: AT)
  Receive Date: 20210802
  Receipt Date: 20210802
  Transmission Date: 20211014
  Serious: Yes (Other)
  Sender: FDA-Public Use
  Company Number: NVSC2021AT172679

PATIENT
  Age: 45 Year
  Sex: Male

DRUGS (9)
  1. PROTHIPENDYL [Suspect]
     Active Substance: PROTHIPENDYL
     Dosage: 40 MG, UNKNOWN, DAY 10
     Route: 065
  2. LACTATED RINGERS SOLUTION [Concomitant]
     Active Substance: CALCIUM CHLORIDE\POTASSIUM CHLORIDE\SODIUM CHLORIDE\SODIUM LACTATE
     Indication: PROPHYLAXIS
     Dosage: UNK UNK, QD
     Route: 042
  3. PALIPERIDONE PALMITATE [Suspect]
     Active Substance: PALIPERIDONE PALMITATE
     Indication: SCHIZOPHRENIA
     Dosage: DEPOT, ADMINISTERED GLUTEALLY
     Route: 065
  4. RISPERIDONE. [Concomitant]
     Active Substance: RISPERIDONE
     Dosage: 5 MG, QD
     Route: 048
  5. PROTHIPENDYL [Suspect]
     Active Substance: PROTHIPENDYL
     Indication: SLEEP DISORDER
     Dosage: 80 MG, UNKNOWN, DAY 9
     Route: 065
  6. PALIPERIDONE PALMITATE [Suspect]
     Active Substance: PALIPERIDONE PALMITATE
     Dosage: DAY 24: 156 MG, UNK
     Route: 065
  7. RISPERIDONE. [Concomitant]
     Active Substance: RISPERIDONE
     Indication: SCHIZOPHRENIA
     Dosage: UNK
     Route: 048
  8. HYDROCHLOROTHIAZIDE,LISINOPRIL [Suspect]
     Active Substance: HYDROCHLOROTHIAZIDE\LISINOPRIL
     Indication: ESSENTIAL HYPERTENSION
     Dosage: UNK
     Route: 065
  9. PALIPERIDONE PALMITATE [Suspect]
     Active Substance: PALIPERIDONE PALMITATE
     Dosage: DAY 20: 234 MG, UNK
     Route: 065

REACTIONS (1)
  - Rhabdomyolysis [Recovered/Resolved]
